FAERS Safety Report 7994907-6 (Version None)
Quarter: 2011Q4

REPORT INFORMATION
  Report Type: 
  Country: None (occurrence: None)
  Receive Date: 20111220
  Receipt Date: 20111216
  Transmission Date: 20120403
  Serious: Yes (Hospitalization)
  Sender: FDA-Public Use
  Company Number: US-ROCHE-1023129

PATIENT
  Sex: Female

DRUGS (1)
  1. XELODA [Suspect]
     Indication: RENAL CANCER
     Route: 048

REACTIONS (2)
  - INTESTINAL OBSTRUCTION [None]
  - NAUSEA [None]
